FAERS Safety Report 5886697-8 (Version None)
Quarter: 2008Q3

REPORT INFORMATION
  Report Type: 
  Country: None (occurrence: None)
  Receive Date: 20080917
  Receipt Date: 20080910
  Transmission Date: 20090109
  Serious: Yes (Other)
  Sender: FDA-Public Use
  Company Number: PHHY2008BR21158

PATIENT
  Sex: Male
  Weight: 70 kg

DRUGS (18)
  1. HYDERGINE [Suspect]
     Indication: DIZZINESS
     Dosage: 1 TABLET AT NIGHT
     Route: 048
     Dates: start: 20080905
  2. BENERVA [Concomitant]
     Dosage: 300 MG/DAY
     Route: 048
  3. METFORMIN HCL [Concomitant]
     Indication: BLOOD INSULIN
     Dosage: 500 MG, BID, IN THE MORNING AND AT LUNCH
     Route: 048
  4. ATENOLOL [Concomitant]
     Indication: BLOOD PRESSURE
     Dosage: 25 MG, BID,IN THE MORNING AND AT NIGHT
     Route: 048
  5. ENALAPRIL MALEATE [Concomitant]
     Indication: BLOOD PRESSURE
     Dosage: 20 MG, TID
     Route: 048
  6. DILTIAZEM HYDROCHLORIDE [Concomitant]
     Dosage: 30 MG, TID
     Route: 048
  7. INDAPAMIDE [Concomitant]
     Dosage: 0.5 MG, QD
     Route: 048
  8. CITALOR [Concomitant]
     Indication: BLOOD PRESSURE
     Dosage: HALF TABLET A DAY FOR 2 DAYS AND 1 TABLET A DAY FOR 1 DAY
     Route: 048
  9. VITAMIN A [Concomitant]
  10. LANTUS [Concomitant]
     Dosage: 28 IU, BEFORE THE BREAKFAST
  11. INSULIN RAPID [Concomitant]
     Dosage: AFTER LUNCH AND DINNER
  12. BENEFIBER [Concomitant]
     Indication: STOMACH DISCOMFORT
     Dosage: 1 SPOON IN THE MORNING
  13. VASTAREL [Concomitant]
     Indication: CHEST PAIN
     Dosage: 20 MG, BID
     Route: 048
  14. PANTOZOL [Concomitant]
     Dosage: UNK
  15. FRONTAL [Concomitant]
     Indication: SLEEP DISORDER THERAPY
     Dosage: 0.5 MG, UNK
     Route: 048
  16. PLAVIX [Concomitant]
     Indication: ANTICOAGULANT THERAPY
     Dosage: 1 TABLET A DAY
     Route: 048
  17. ISOSORBIDE MONONITRATE [Concomitant]
     Indication: CHEST PAIN
     Dosage: 40MG/DAY
     Route: 048
  18. TAMARIL [Concomitant]

REACTIONS (6)
  - BLOOD GLUCOSE INCREASED [None]
  - DIZZINESS [None]
  - DRUG INEFFECTIVE [None]
  - INSOMNIA [None]
  - MUSCULAR WEAKNESS [None]
  - SYNCOPE [None]
